FAERS Safety Report 5969280-5 (Version None)
Quarter: 2008Q4

REPORT INFORMATION
  Report Type: 
  Country: None (occurrence: None)
  Receive Date: 20081126
  Receipt Date: 20081121
  Transmission Date: 20090506
  Serious: Yes (Other)
  Sender: FDA-Public Use
  Company Number: JP-B.I. PHARMACEUTICALS,INC./RIDGEFIELD-2008-BP-17682NB

PATIENT
  Age: 57 Year
  Sex: Female

DRUGS (3)
  1. MICARDIS [Suspect]
     Indication: HYPERTENSION
     Dosage: 20MG
     Route: 048
     Dates: start: 20040101, end: 20081113
  2. ARTIST [Concomitant]
     Route: 048
  3. LANDEL [Concomitant]
     Route: 048

REACTIONS (1)
  - BILIARY CIRRHOSIS PRIMARY [None]
